FAERS Safety Report 11406373 (Version 2)
Quarter: 2016Q3

REPORT INFORMATION
  Report Type: Spontaneous
  Country: US (occurrence: US)
  Receive Date: 20150821
  Receipt Date: 20160826
  Transmission Date: 20161109
  Serious: Yes (Hospitalization)
  Sender: FDA-Public Use
  Company Number: US-NOVOPROD-422593

PATIENT
  Age: 69 Year
  Sex: Female
  Weight: 52.15 kg

DRUGS (6)
  1. VICTOZA [Suspect]
     Active Substance: LIRAGLUTIDE
     Indication: TYPE 2 DIABETES MELLITUS
     Dosage: 1.2 MG, QD
     Route: 058
     Dates: start: 201407, end: 20140823
  2. PROGRAF [Concomitant]
     Active Substance: TACROLIMUS\TACROLIMUS ANHYDROUS
     Indication: RENAL TRANSPLANT
     Dosage: UNK
     Route: 048
     Dates: start: 200412
  3. PREDNISONE. [Concomitant]
     Active Substance: PREDNISONE
     Indication: RENAL TRANSPLANT
     Dosage: UNK
     Route: 048
     Dates: start: 200412
  4. VICTOZA [Suspect]
     Active Substance: LIRAGLUTIDE
     Dosage: 1.2 MG, QD
     Route: 058
     Dates: start: 201407, end: 20140823
  5. VICTOZA [Suspect]
     Active Substance: LIRAGLUTIDE
     Dosage: 1.2 MG, QD
     Route: 058
     Dates: start: 201407, end: 20140823
  6. MYCOPHENOLATE [Concomitant]
     Active Substance: MYCOPHENOLIC ACID
     Indication: RENAL TRANSPLANT
     Dosage: UNK
     Route: 048
     Dates: start: 200412

REACTIONS (1)
  - Pancreatitis [Recovered/Resolved]

NARRATIVE: CASE EVENT DATE: 201408
